FAERS Safety Report 21425016 (Version 1)
Quarter: 2022Q4

REPORT INFORMATION
  Report Type: Spontaneous
  Country: US (occurrence: US)
  Receive Date: 20221008
  Receipt Date: 20221008
  Transmission Date: 20230112
  Serious: Yes (Hospitalization, Other)
  Sender: FDA-Public Use
  Company Number: US-CADILA HEALTHCARE LIMITED-US-ZYDUS-083206

PATIENT

DRUGS (1)
  1. TOPIRAMATE [Suspect]
     Active Substance: TOPIRAMATE
     Indication: Generalised tonic-clonic seizure
     Dosage: 75 MILLIGRAM, QD
     Route: 048

REACTIONS (3)
  - Vitamin B1 deficiency [Recovering/Resolving]
  - Wernicke^s encephalopathy [Recovering/Resolving]
  - Weight decreased [Recovered/Resolved]
